FAERS Safety Report 6770697-X (Version None)
Quarter: 2010Q2

REPORT INFORMATION
  Report Type: 
  Country: None (occurrence: None)
  Receive Date: 20100615
  Receipt Date: 20100609
  Transmission Date: 20101027
  Serious: Yes (Death, Other)
  Sender: FDA-Public Use
  Company Number: PHHY2010JP37819

PATIENT
  Sex: Female

DRUGS (3)
  1. ZOLEDRONATE T29581+ [Suspect]
     Indication: METASTASES TO BONE
     Dosage: 4 MG (SINGLE DOSE)
     Route: 041
     Dates: start: 20080124, end: 20080124
  2. MORPHINE HYDROCHLORIDE [Concomitant]
     Dosage: 20 MG
     Dates: start: 20080301, end: 20080302
  3. PREDONINE [Concomitant]
     Dosage: 60 MG
     Route: 042
     Dates: start: 20080124, end: 20080124

REACTIONS (2)
  - MALIGNANT NEOPLASM PROGRESSION [None]
  - RENAL IMPAIRMENT [None]
